FAERS Safety Report 18599871 (Version 1)
Quarter: 2020Q4

REPORT INFORMATION
  Report Type: Spontaneous
  Country: US (occurrence: US)
  Receive Date: 20201209
  Receipt Date: 20201209
  Transmission Date: 20210114
  Serious: No
  Sender: FDA-Public Use
  Company Number: None

PATIENT
  Sex: Female

DRUGS (1)
  1. CYCLOPHOSPHAMIDE 1 GM BAXTER HEALTHCARE CORPORATION [Suspect]
     Active Substance: CYCLOPHOSPHAMIDE
     Indication: BREAST CANCER FEMALE
     Dosage: ?          OTHER FREQUENCY:EVERY 21 DAYS
     Route: 042
     Dates: start: 20201104

REACTIONS (1)
  - Full blood count decreased [None]
